FAERS Safety Report 13240421 (Version 1)
Quarter: 2017Q1

REPORT INFORMATION
  Report Type: Spontaneous
  Country: US (occurrence: US)
  Receive Date: 20170216
  Receipt Date: 20170216
  Transmission Date: 20170428
  Serious: No
  Sender: FDA-Public Use
  Company Number: US-RELYPSA-RLY2016003444

PATIENT
  Age: 73 Year
  Sex: Male

DRUGS (2)
  1. TAXOTERE [Concomitant]
     Active Substance: DOCETAXEL
     Indication: CHEMOTHERAPY
  2. VELTASSA [Suspect]
     Active Substance: PATIROMER
     Indication: PRODUCT USED FOR UNKNOWN INDICATION
     Dosage: 8.4 G, 3 TIMES PER WEEK
     Route: 048
     Dates: start: 20161026

REACTIONS (2)
  - Drug dose omission [Recovered/Resolved]
  - Inappropriate schedule of drug administration [Not Recovered/Not Resolved]

NARRATIVE: CASE EVENT DATE: 20161020
